FAERS Safety Report 8687518 (Version 2)
Quarter: 2013Q1

REPORT INFORMATION
  Report Type: Report from Study
  Country: AT (occurrence: AT)
  Receive Date: 20120727
  Receipt Date: 20130104
  Transmission Date: 20140127
  Serious: Yes (Hospitalization, Other)
  Sender: FDA-Public Use
  Company Number: AT-PFIZER INC-2004201788AT

PATIENT
  Age: 70 Year
  Sex: Female
  Weight: 70 kg

DRUGS (18)
  1. GENOTROPIN [Suspect]
     Indication: HYPOPITUITARISM
     Dosage: 0.8 IU, 1X/DAY
     Dates: start: 20000307
  2. GENOTROPIN [Suspect]
     Dosage: 0.13 MG, 1X/DAY, SEVEN DAYS A WEEK
     Route: 058
     Dates: start: 20010620, end: 20020717
  3. PROSTADILAT [Concomitant]
     Indication: BENIGN PROSTATIC HYPERPLASIA
     Dosage: UNK
     Dates: start: 20031125
  4. LESCOL [Concomitant]
     Indication: HYPERLIPIDAEMIA
     Dosage: UNK
     Dates: start: 20001115
  5. THYREX [Concomitant]
     Indication: BLOOD THYROID STIMULATING HORMONE DECREASED
     Dosage: UNK
     Dates: start: 200204
  6. ACTONEL [Concomitant]
     Indication: OSTEOPOROSIS
     Dosage: UNK
     Dates: start: 200105
  7. LIVIEL [Concomitant]
     Indication: HORMONE REPLACEMENT THERAPY
     Dosage: UNK
     Dates: start: 200105
  8. SEROXAT ^CIBA-GEIGY^ [Concomitant]
     Indication: DEPRESSION
     Dosage: UNK
     Dates: start: 19900701
  9. VITAMIN D3 [Concomitant]
     Indication: BONE DISORDER
     Dosage: UNK
     Dates: start: 19990815
  10. MAGNOSOLV ^ASTA MEDICA^ [Concomitant]
     Indication: MINERAL DEFICIENCY
     Dosage: UNK
     Dates: start: 19990815
  11. PULMICORT [Concomitant]
     Indication: ASTHMA
     Dosage: UNK
     Dates: start: 19990915
  12. OXIS [Concomitant]
     Indication: ASTHMA
     Dosage: UNK
     Dates: start: 19990915
  13. DESMOPRESSIN [Concomitant]
     Indication: ANTIDIURETIC HORMONE ABNORMALITY
     Dosage: UNK
     Dates: start: 19991001
  14. HYDROCORTISONE [Concomitant]
     Indication: BLOOD CORTICOTROPHIN DECREASED
     Dosage: UNK
     Dates: start: 19991013
  15. DILATREND [Concomitant]
     Indication: MYOCARDIAL ISCHAEMIA
     Dosage: UNK
     Dates: start: 20030618
  16. AGOPTON [Concomitant]
     Indication: MYOCARDIAL ISCHAEMIA
     Dosage: UNK
     Dates: start: 20030618
  17. TESTOVIRON [Concomitant]
     Indication: BLOOD FOLLICLE STIMULATING HORMONE DECREASED
  18. TESTOVIRON [Concomitant]
     Indication: LUTEINISING HORMONE DEFICIENCY

REACTIONS (1)
  - Plasma cell myeloma [Unknown]
